FAERS Safety Report 4277632-7 (Version None)
Quarter: 2004Q1

REPORT INFORMATION
  Report Type: 
  Country: None (occurrence: None)
  Receive Date: 20040121
  Receipt Date: 20040109
  Transmission Date: 20041129
  Serious: Yes (Death)
  Sender: FDA-Public Use
  Company Number: 03P-163-0235971-00

PATIENT
  Age: 40 Year
  Sex: Male

DRUGS (6)
  1. RITONAVIR SOFT GELATIN CAPSULES (NOVIR) (RITONAVIR)  (RITONAVIR) [Suspect]
     Indication: HIV INFECTION
     Dosage: PER ORAL
     Route: 048
     Dates: start: 20030923, end: 20030927
  2. TIPRANAVIR [Concomitant]
  3. DOXORUBICIN HCL [Concomitant]
  4. LANSOPRAZOLE [Concomitant]
  5. EPOGEN [Concomitant]
  6. PREDNISONE [Concomitant]

REACTIONS (3)
  - CARDIOPULMONARY FAILURE [None]
  - IMMUNODEFICIENCY [None]
  - LYMPHOMA [None]
